FAERS Safety Report 5173134-4 (Version None)
Quarter: 2006Q4

REPORT INFORMATION
  Report Type: 
  Country: None (occurrence: None)
  Receive Date: 20061214
  Receipt Date: 20060831
  Transmission Date: 20070319
  Serious: Yes (Other)
  Sender: FDA-Public Use
  Company Number: EM2006-0494

PATIENT
  Sex: Female
  Weight: 55 kg

DRUGS (6)
  1. TOBI; CHIRON CORPORATION [Suspect]
     Indication: PSEUDOMONAS INFECTION
     Dosage: 300 MG, BID
     Dates: start: 20050101
  2. SALBUTAMOL [Concomitant]
     Indication: CYSTIC FIBROSIS
     Dosage: 10 DRP, BID
  3. SODIUM CHLORIDE [Concomitant]
     Indication: CYSTIC FIBROSIS
     Dosage: 5 ML, BID
     Dates: start: 20060101
  4. SODIUM CHLORIDE [Concomitant]
     Dosage: 1 DF, TID
     Route: 045
     Dates: start: 20050101
  5. KREON [Concomitant]
     Indication: CYSTIC FIBROSIS
     Dosage: {10000 IU/KG/D
     Route: 048
  6. ACETYLCYSTEINE [Concomitant]
     Indication: CYSTIC FIBROSIS
     Dosage: 200 MG, TID
     Route: 048

REACTIONS (1)
  - AMENORRHOEA [None]
